FAERS Safety Report 5815281-7 (Version None)
Quarter: 2008Q3

REPORT INFORMATION
  Report Type: 
  Country: None (occurrence: None)
  Receive Date: 20080718
  Receipt Date: 20080718
  Transmission Date: 20090109
  Serious: Yes (Other)
  Sender: FDA-Public Use
  Company Number: FR-ABBOTT-08P-056-0461808-00

PATIENT
  Sex: Female
  Weight: 56 kg

DRUGS (11)
  1. KALETRA [Suspect]
     Indication: HIV TEST POSITIVE
     Route: 048
     Dates: start: 20080125
  2. EMTRICITABINE-TENOFOVIR DISOPROXIL [Suspect]
     Indication: HIV TEST POSITIVE
     Route: 048
     Dates: start: 20080125, end: 20080331
  3. AZITHROMYCIN [Concomitant]
     Indication: ANTIBIOTIC PROPHYLAXIS
     Route: 048
     Dates: start: 20080125
  4. DOXYCYCLINE HCL [Concomitant]
     Indication: BACTERIAL INFECTION
     Route: 048
     Dates: start: 20080125, end: 20080331
  5. CALCIUM FOLINATE [Concomitant]
     Indication: HAEMATOTOXICITY
     Route: 048
     Dates: start: 20080125, end: 20080331
  6. PENTAMIDINE [Concomitant]
     Indication: INFECTION PROPHYLAXIS
     Route: 055
     Dates: start: 20080125, end: 20080125
  7. CITALOPRAM HYDROBROMIDE [Concomitant]
     Indication: DEPRESSION
     Route: 048
     Dates: start: 20080125, end: 20080209
  8. CLONAZEPAM [Concomitant]
     Dates: start: 20080211, end: 20080331
  9. CLONAZEPAM [Concomitant]
     Dates: start: 20080125, end: 20080211
  10. TRIMEPRAZINE TAB [Concomitant]
     Dates: start: 20080211, end: 20080331
  11. TRIMEPRAZINE TAB [Concomitant]
     Dates: start: 20080125, end: 20080211

REACTIONS (2)
  - HYPERPROLACTINAEMIA [None]
  - RENAL FAILURE [None]
